FAERS Safety Report 10358641 (Version 1)
Quarter: 2014Q3

REPORT INFORMATION
  Report Type: Spontaneous
  Country: US (occurrence: US)
  Receive Date: 20140803
  Receipt Date: 20140803
  Transmission Date: 20150326
  Serious: No
  Sender: FDA-Public Use
  Company Number: US-009507513-1408USA000568

PATIENT
  Sex: Female

DRUGS (1)
  1. BAIN DE SOLEIL ORANGE CREME SPF 4 [Suspect]
     Active Substance: OCTINOXATE\OXYBENZONE
     Indication: PRODUCT USED FOR UNKNOWN INDICATION
     Dosage: UNK, UNKNOWN
     Route: 061

REACTIONS (2)
  - Skin odour abnormal [Unknown]
  - Sticky skin [Unknown]
